FAERS Safety Report 5203800-3 (Version None)
Quarter: 2007Q1

REPORT INFORMATION
  Report Type: 
  Country: None (occurrence: None)
  Receive Date: 20070109
  Receipt Date: 20070109
  Transmission Date: 20070707
  Serious: Yes (Life-Threatening, Hospitalization)
  Sender: FDA-Public Use
  Company Number: None

PATIENT
  Age: 78 Year
  Sex: Male
  Weight: 91.8 kg

DRUGS (11)
  1. GLEEVEC [Suspect]
     Indication: RENAL CELL CARCINOMA STAGE UNSPECIFIED
     Dosage: 600 MG PER DAY PO
     Route: 048
     Dates: start: 20061208, end: 20061226
  2. RAD001 [Suspect]
     Indication: RENAL CELL CARCINOMA STAGE UNSPECIFIED
     Dosage: 2.5 MG PER DAY PO
     Route: 048
     Dates: start: 20061208, end: 20061226
  3. PERCOCET [Concomitant]
  4. ALFUZOSIN [Concomitant]
  5. AMLODIPINE [Concomitant]
  6. ASPIRIN [Concomitant]
  7. PLAVIX [Concomitant]
  8. METOPROLOL SUCCINATE [Concomitant]
  9. NITROGLYCERIN [Concomitant]
  10. SYNTHROID [Concomitant]
  11. VYTORIN [Concomitant]

REACTIONS (6)
  - ANAEMIA [None]
  - CARDIAC FAILURE CONGESTIVE [None]
  - HAEMATOMA [None]
  - LOCAL SWELLING [None]
  - PENILE SWELLING [None]
  - PERITONEAL HAEMORRHAGE [None]
